FAERS Safety Report 4838469-0 (Version None)
Quarter: 2005Q4

REPORT INFORMATION
  Report Type: 
  Country: None (occurrence: None)
  Receive Date: 20051129
  Receipt Date: 20051118
  Transmission Date: 20060501
  Serious: Yes (Other)
  Sender: FDA-Public Use
  Company Number: PHNU2005DE03819

PATIENT
  Sex: Female

DRUGS (1)
  1. CLOZARIL [Suspect]
     Dosage: UNKNOWN
     Route: 048

REACTIONS (2)
  - OBSESSIVE THOUGHTS [None]
  - OBSESSIVE-COMPULSIVE DISORDER [None]
